FAERS Safety Report 22896368 (Version 2)
Quarter: 2023Q4

REPORT INFORMATION
  Report Type: Spontaneous
  Country: US (occurrence: US)
  Receive Date: 20230901
  Receipt Date: 20231020
  Transmission Date: 20240110
  Serious: No
  Sender: FDA-Public Use
  Company Number: US-PFIZER INC-202300286984

PATIENT
  Sex: Male

DRUGS (1)
  1. NURTEC ODT [Suspect]
     Active Substance: RIMEGEPANT SULFATE
     Indication: Migraine
     Dosage: TAKES IN THE EVENING BETWEEN 9 AND 10PM
     Dates: start: 2023

REACTIONS (6)
  - Feeling hot [Unknown]
  - Headache [Unknown]
  - Hyperhidrosis [Unknown]
  - Emotional disorder [Unknown]
  - Insomnia [Unknown]
  - Agitation [Unknown]
